FAERS Safety Report 10216053 (Version 1)
Quarter: 2014Q2

REPORT INFORMATION
  Report Type: Spontaneous
  Country: US (occurrence: None)
  Receive Date: 20140603
  Receipt Date: 20140603
  Transmission Date: 20141212
  Serious: Yes (Hospitalization)
  Sender: FDA-Public Use
  Company Number: None

PATIENT
  Age: 37 Year
  Sex: Female
  Weight: 85.3 kg

DRUGS (10)
  1. MIRTAZAPINE 15MG [Suspect]
     Indication: DEPRESSION
     Dosage: 30MG, QHS, ORAL
     Route: 048
     Dates: start: 20140517, end: 20140520
  2. CLONAZOPAM [Concomitant]
  3. DICYCLOMINE HCL [Concomitant]
  4. ACETAMINOPHEN [Concomitant]
  5. GABAPENTIN [Concomitant]
  6. HYDROCODONE-ACETAMINOPHEN [Concomitant]
  7. NECON [Concomitant]
  8. ONDANSETRON [Concomitant]
  9. PANTOPRAZOLE [Concomitant]
  10. SERTRALINE [Concomitant]

REACTIONS (9)
  - Headache [None]
  - Chills [None]
  - Pyrexia [None]
  - Nausea [None]
  - Fatigue [None]
  - Asthenia [None]
  - Dizziness [None]
  - Paraesthesia [None]
  - Confusional state [None]
